FAERS Safety Report 10266114 (Version 1)
Quarter: 2014Q2

REPORT INFORMATION
  Report Type: Spontaneous
  Country: DZ (occurrence: DZ)
  Receive Date: 20140627
  Receipt Date: 20140627
  Transmission Date: 20141212
  Serious: Yes (Other)
  Sender: FDA-Public Use
  Company Number: DZ-BAXTER-2014BAX032614

PATIENT
  Age: 75 Year
  Sex: Female

DRUGS (1)
  1. CAPD FORMULA 55 C DIALYSE SOL 2L [Suspect]
     Indication: RENAL FAILURE CHRONIC
     Route: 033
     Dates: start: 20140505

REACTIONS (2)
  - Peritoneal cloudy effluent [Unknown]
  - Abdominal pain [Unknown]
